FAERS Safety Report 6336980-7 (Version None)
Quarter: 2009Q3

REPORT INFORMATION
  Report Type: 
  Country: None (occurrence: None)
  Receive Date: 20090901
  Receipt Date: 20081223
  Transmission Date: 20100115
  Serious: Yes (Death)
  Sender: FDA-Public Use
  Company Number: PHEH2008US11610

PATIENT
  Sex: Male

DRUGS (1)
  1. TOBI [Suspect]
     Indication: CYSTIC FIBROSIS
     Dosage: 300 MG, BID, EVERY ALTERNATE MONTH
     Dates: start: 20080226

REACTIONS (3)
  - DISEASE PROGRESSION [None]
  - PNEUMONIA STAPHYLOCOCCAL [None]
  - RESPIRATORY ARREST [None]
